FAERS Safety Report 16892427 (Version 1)
Quarter: 2019Q4

REPORT INFORMATION
  Report Type: Report from Study
  Country: US (occurrence: US)
  Receive Date: 20191007
  Receipt Date: 20191007
  Transmission Date: 20200122
  Serious: No
  Sender: FDA-Public Use
  Company Number: US-INCYTE CORPORATION-2019IN009842

PATIENT

DRUGS (9)
  1. JAKAFI [Suspect]
     Active Substance: RUXOLITINIB
     Dosage: 10 MILLIGRAM BID MONDAY THROUGH FRIDAY, 10 MILLIGRAM QD SATURDAY THROUGH SUNDAY
     Route: 065
     Dates: start: 20180316, end: 20180517
  2. TYLENOL [Concomitant]
     Active Substance: ACETAMINOPHEN
     Indication: POLYCYTHAEMIA VERA
     Dosage: 650 MILLIGRAM, QD
     Route: 065
     Dates: start: 20170928
  3. ELIQUIS [Concomitant]
     Active Substance: APIXABAN
     Indication: ATRIAL FIBRILLATION
     Dosage: 25 MILLIGRAM, BID
     Route: 065
     Dates: start: 20150624
  4. JAKAFI [Suspect]
     Active Substance: RUXOLITINIB
     Indication: POLYCYTHAEMIA VERA
     Dosage: 10 MILLIGRAM, BID
     Route: 065
     Dates: start: 20171207, end: 20180315
  5. HYDREA [Concomitant]
     Active Substance: HYDROXYUREA
     Dosage: 1500 MILLIGRAM, 3X/WEEK
     Route: 065
     Dates: start: 20180622
  6. HYDREA [Concomitant]
     Active Substance: HYDROXYUREA
     Dosage: 500 MILLIGRAM, BID
     Route: 065
     Dates: start: 20170929, end: 20171206
  7. HYDREA [Concomitant]
     Active Substance: HYDROXYUREA
     Dosage: 500 MILLIGRAM
     Route: 065
     Dates: start: 20180518, end: 20180621
  8. HYDREA [Concomitant]
     Active Substance: HYDROXYUREA
     Dosage: 1000 MILLIGRAM 4 TIMES PER WEEK
     Route: 065
     Dates: start: 20180910
  9. HYDREA [Concomitant]
     Active Substance: HYDROXYUREA
     Indication: POLYCYTHAEMIA VERA
     Dosage: 1500 MILLIGRAM, 3X/WEEK; 1000 MILLIGRAM 4 TIMES PER WEEK
     Route: 065
     Dates: start: 20140926, end: 20170928

REACTIONS (5)
  - Anaemia [Recovered/Resolved]
  - Muscle spasms [Recovered/Resolved]
  - Mouth ulceration [Recovered/Resolved]
  - Thrombocytosis [Recovered/Resolved]
  - Upper respiratory tract infection [Recovered/Resolved]

NARRATIVE: CASE EVENT DATE: 20180419
